FAERS Safety Report 9481122 (Version 1)
Quarter: 2013Q3

REPORT INFORMATION
  Report Type: Spontaneous
  Country: US (occurrence: US)
  Receive Date: 20130828
  Receipt Date: 20130828
  Transmission Date: 20140515
  Serious: Yes (Hospitalization)
  Sender: FDA-Public Use
  Company Number: US-AMGEN-KDL154789

PATIENT
  Age: 57 Year
  Sex: Female

DRUGS (4)
  1. ENBREL [Suspect]
     Indication: PSORIASIS
     Dosage: 50 MG, QWK
     Route: 058
     Dates: start: 20020101, end: 20051016
  2. ENBREL [Suspect]
     Indication: PSORIATIC ARTHROPATHY
  3. ANTIHYPERTENSIVE MEDICATION NOS [Concomitant]
  4. THYROID [Concomitant]

REACTIONS (9)
  - Blood blister [Unknown]
  - Platelet count decreased [Recovered/Resolved]
  - Ephelides [Unknown]
  - Oral disorder [Unknown]
  - Renal disorder [Recovered/Resolved]
  - Blood glucose increased [Unknown]
  - Phonological disorder [Unknown]
  - Psoriasis [Unknown]
  - Condition aggravated [Unknown]
